FAERS Safety Report 19104902 (Version 1)
Quarter: 2021Q2

REPORT INFORMATION
  Report Type: Report from Study
  Country: IN (occurrence: IN)
  Receive Date: 20210407
  Receipt Date: 20210407
  Transmission Date: 20210717
  Serious: Yes (Death, Other)
  Sender: FDA-Public Use
  Company Number: NVSC2021IN016507

PATIENT
  Age: 53 Year
  Sex: Female

DRUGS (2)
  1. REVOLADE [Suspect]
     Active Substance: ELTROMBOPAG OLAMINE
     Dosage: 100 MG, QD
     Route: 048
     Dates: start: 20210112, end: 20210311
  2. REVOLADE [Suspect]
     Active Substance: ELTROMBOPAG OLAMINE
     Indication: APLASTIC ANAEMIA
     Dosage: 150 MG, QD
     Route: 048
     Dates: start: 20200827, end: 20201219

REACTIONS (4)
  - Haemorrhage [Fatal]
  - Blood bilirubin increased [Recovered/Resolved]
  - Head injury [Fatal]
  - Product use issue [Unknown]

NARRATIVE: CASE EVENT DATE: 20201201
